FAERS Safety Report 4925975-3 (Version None)
Quarter: 2006Q1

REPORT INFORMATION
  Report Type: 
  Country: None (occurrence: None)
  Receive Date: 20060228
  Receipt Date: 20050714
  Transmission Date: 20060701
  Serious: No
  Sender: FDA-Public Use
  Company Number: S2005US10389

PATIENT
  Age: 31 Year
  Sex: Male

DRUGS (2)
  1. LAMICTAL [Suspect]
     Dosage: 100MG PER DAY
     Route: 048
  2. RISPERDAL [Suspect]
     Indication: PARANOIA
     Dosage: 4MG PER DAY
     Route: 065

REACTIONS (1)
  - PERIPHERAL COLDNESS [None]
